FAERS Safety Report 9132448 (Version 1)
Quarter: 2013Q1

REPORT INFORMATION
  Report Type: Report from Study
  Country: TR (occurrence: TR)
  Receive Date: 20130301
  Receipt Date: 20130301
  Transmission Date: 20140127
  Serious: Yes (Life-Threatening, Hospitalization, Other)
  Sender: FDA-Public Use
  Company Number: TR-VERTEX PHARMACEUTICALS INC.-000000000000000347

PATIENT
  Sex: Male
  Weight: 64 kg

DRUGS (3)
  1. VX-950 (TELAPREVIR) [Suspect]
     Indication: HEPATITIS C
     Dosage: DOSAGE FORM: TABLET
     Route: 048
     Dates: start: 20120209, end: 20120226
  2. RIBAVIRIN [Suspect]
     Indication: HEPATITIS C
  3. PEG INTERFERON [Suspect]
     Indication: HEPATITIS C

REACTIONS (3)
  - Thrombocytopenia [Unknown]
  - Hepatic failure [Recovered/Resolved]
  - Gingival bleeding [Unknown]
